FAERS Safety Report 6744149-7 (Version None)
Quarter: 2010Q2

REPORT INFORMATION
  Report Type: 
  Country: None (occurrence: None)
  Receive Date: 20100527
  Receipt Date: 20100521
  Transmission Date: 20101027
  Serious: Yes (Other)
  Sender: FDA-Public Use
  Company Number: D0067708A

PATIENT
  Age: 79 Year
  Sex: Female

DRUGS (4)
  1. ARIXTRA [Suspect]
     Dosage: 7.5MG UNKNOWN
     Route: 065
  2. ASPIRIN [Concomitant]
     Route: 065
  3. CLOPIDOGREL [Concomitant]
     Route: 065
  4. ANTIBIOTIC [Concomitant]
     Route: 065

REACTIONS (2)
  - EYE HAEMORRHAGE [None]
  - VISUAL IMPAIRMENT [None]
